FAERS Safety Report 22044831 (Version 1)
Quarter: 2023Q1

REPORT INFORMATION
  Report Type: Spontaneous
  Country: CA (occurrence: CA)
  Receive Date: 20230228
  Receipt Date: 20230228
  Transmission Date: 20230418
  Serious: Yes (Other)
  Sender: FDA-Public Use
  Company Number: CA-002147023-NVSC2023CA044810

PATIENT
  Age: 17 Year
  Sex: Male

DRUGS (3)
  1. LOSARTAN [Suspect]
     Active Substance: LOSARTAN
     Indication: Stiff skin syndrome
     Dosage: 0.7 MG/KG, QD
     Route: 048
  2. LOSARTAN [Suspect]
     Active Substance: LOSARTAN
     Dosage: 100 MG, QD
     Route: 065
  3. SECUKINUMAB [Concomitant]
     Active Substance: SECUKINUMAB
     Indication: Stiff skin syndrome
     Dosage: 300 MG SUBCUTANEOUSLY MONTHLY
     Route: 058

REACTIONS (3)
  - Stiff skin syndrome [Recovering/Resolving]
  - Disease progression [Recovering/Resolving]
  - Product use in unapproved indication [Unknown]
